FAERS Safety Report 23626594 (Version 1)
Quarter: 2024Q1

REPORT INFORMATION
  Report Type: Spontaneous
  Country: US (occurrence: None)
  Receive Date: 20240312
  Receipt Date: 20240312
  Transmission Date: 20240410
  Serious: Yes (Disabling)
  Sender: FDA-Public Use
  Company Number: None

PATIENT
  Age: 45 Year
  Sex: Female
  Weight: 63 kg

DRUGS (4)
  1. EMGALITY [Suspect]
     Active Substance: GALCANEZUMAB-GNLM
     Indication: Migraine
     Dosage: OTHER QUANTITY : 1 INJECTION(S);?FREQUENCY : MONTHLY;?OTHER ROUTE : INJECTED INTO THIGH MUSCLE;?
     Route: 050
     Dates: start: 20240305
  2. SYNTHROID [Concomitant]
     Active Substance: LEVOTHYROXINE SODIUM
  3. SIMVASTATIN [Concomitant]
     Active Substance: SIMVASTATIN
  4. VITAMIN B COMPLEX [Concomitant]
     Active Substance: CYANOCOBALAMIN\DEXPANTHENOL\NIACINAMIDE\PYRIDOXINE HYDROCHLORIDE\RIBOFLAVIN 5^-PHOSPHATE SODIUM\THIA

REACTIONS (6)
  - Somnolence [None]
  - Nausea [None]
  - Dizziness [None]
  - Vertigo [None]
  - Tinnitus [None]
  - Product complaint [None]

NARRATIVE: CASE EVENT DATE: 20240305
